FAERS Safety Report 11171367 (Version 1)
Quarter: 2015Q2

REPORT INFORMATION
  Report Type: Spontaneous
  Country: US (occurrence: None)
  Receive Date: 20150515
  Receipt Date: 20150515
  Transmission Date: 20150821
  Serious: Yes (Other)
  Sender: FDA-Public Use
  Company Number: 082121

PATIENT
  Sex: Female

DRUGS (1)
  1. CIMZIA [Suspect]
     Active Substance: CERTOLIZUMAB PEGOL
     Indication: CROHN^S DISEASE
     Dosage: EXP DATE: NOV-2015
     Dates: start: 20090406, end: 201311

REACTIONS (4)
  - Dental caries [None]
  - Thrombosis [None]
  - Sinusitis [None]
  - Anal fistula [None]
